FAERS Safety Report 21373786 (Version 1)
Quarter: 2022Q3

REPORT INFORMATION
  Report Type: Report from Study
  Country: EG (occurrence: EG)
  Receive Date: 20220926
  Receipt Date: 20220926
  Transmission Date: 20221026
  Serious: Yes (Other)
  Sender: FDA-Public Use
  Company Number: EG-NOVARTISPH-NVSC2022EG211830

PATIENT
  Sex: Female

DRUGS (2)
  1. TASIGNA [Suspect]
     Active Substance: NILOTINIB
     Indication: Chronic myeloid leukaemia
     Dosage: 800 MG, BID (4 CAPS/DAY: 2 CAPS IN THE MORNING AND 2 CAPS AT NIGHT)
     Route: 048
     Dates: start: 2016
  2. TASIGNA [Suspect]
     Active Substance: NILOTINIB
     Dosage: UNK,  3 CAPS/DAY [2 CAPS IN THE MORNING AND 1 CAP AT NIGHT]
     Route: 065

REACTIONS (16)
  - Abdominal pain upper [Not Recovered/Not Resolved]
  - Feeding disorder [Not Recovered/Not Resolved]
  - Headache [Not Recovered/Not Resolved]
  - Dizziness [Not Recovered/Not Resolved]
  - Fall [Recovered/Resolved with Sequelae]
  - Lower limb fracture [Recovered/Resolved with Sequelae]
  - Hypertension [Recovering/Resolving]
  - Walking disability [Recovering/Resolving]
  - Head discomfort [Recovering/Resolving]
  - Neck pain [Recovering/Resolving]
  - Product storage error [Not Recovered/Not Resolved]
  - Sight disability [Not Recovered/Not Resolved]
  - Diarrhoea [Recovered/Resolved]
  - Dysstasia [Recovering/Resolving]
  - Fatigue [Recovering/Resolving]
  - Abdominal discomfort [Recovered/Resolved]

NARRATIVE: CASE EVENT DATE: 20210101
